FAERS Safety Report 11415836 (Version 1)
Quarter: 2015Q3

REPORT INFORMATION
  Report Type: Spontaneous
  Country: US (occurrence: None)
  Receive Date: 20150824
  Receipt Date: 20150824
  Transmission Date: 20151125
  Serious: Yes (Life-Threatening)
  Sender: FDA-Public Use
  Company Number: None

PATIENT
  Age: 50 Year
  Sex: Female
  Weight: 90.72 kg

DRUGS (14)
  1. LORAZEPAM. [Concomitant]
     Active Substance: LORAZEPAM
  2. LIOTHYRONINE [Concomitant]
     Active Substance: LIOTHYRONINE
  3. LAMICTAL [Concomitant]
     Active Substance: LAMOTRIGINE
  4. ATORVASTATIN [Concomitant]
     Active Substance: ATORVASTATIN
  5. HYOSCYAMINE. [Concomitant]
     Active Substance: HYOSCYAMINE
  6. ARMOUR THYROID [Concomitant]
     Active Substance: THYROID, PORCINE\THYROID, UNSPECIFIED
  7. GUANFACINE ER [Suspect]
     Active Substance: GUANFACINE
     Indication: ATTENTION DEFICIT/HYPERACTIVITY DISORDER
     Dosage: 1 TO 2 MG PER DAY?TWICE DAILY?TAKEN BY MOUTH
     Route: 048
     Dates: start: 20150813, end: 20150821
  8. DEXILANT [Concomitant]
     Active Substance: DEXLANSOPRAZOLE
  9. VITAMIN D [Concomitant]
     Active Substance: CHOLECALCIFEROL
  10. BRINTELLIX [Concomitant]
     Active Substance: VORTIOXETINE HYDROBROMIDE
  11. AMBIEN [Concomitant]
     Active Substance: ZOLPIDEM TARTRATE
  12. BENADRYL [Concomitant]
     Active Substance: DIPHENHYDRAMINE HYDROCHLORIDE
  13. MOTRIN [Concomitant]
     Active Substance: IBUPROFEN
  14. HYDROCHLOROTHIAZIDE. [Concomitant]
     Active Substance: HYDROCHLOROTHIAZIDE

REACTIONS (7)
  - Mood altered [None]
  - Suicidal ideation [None]
  - Judgement impaired [None]
  - Irritability [None]
  - Depression [None]
  - Anger [None]
  - Disturbance in attention [None]

NARRATIVE: CASE EVENT DATE: 20150821
